FAERS Safety Report 11880387 (Version 1)
Quarter: 2015Q4

REPORT INFORMATION
  Report Type: Other
  Country: US (occurrence: US)
  Receive Date: 20151230
  Receipt Date: 20151230
  Transmission Date: 20160305
  Serious: Yes (Hospitalization, Other)
  Sender: FDA-Public Use
  Company Number: US-ACORDA-ACO_109890_2015

PATIENT
  Age: 57 Year
  Sex: Female

DRUGS (3)
  1. BACLOFEN. [Concomitant]
     Active Substance: BACLOFEN
     Indication: MUSCLE SPASTICITY
     Dosage: 38 ?G, QD
     Route: 037
  2. BACLOFEN. [Concomitant]
     Active Substance: BACLOFEN
     Indication: MUSCLE TIGHTNESS
     Dosage: 377 ?G, QD
     Route: 037
  3. TIZANIDINE. [Suspect]
     Active Substance: TIZANIDINE
     Indication: MUSCLE SPASTICITY
     Dosage: UNK
     Route: 065

REACTIONS (7)
  - Muscle spasticity [Unknown]
  - Muscle tightness [Unknown]
  - Hepatitis [Recovered/Resolved]
  - Urinary tract infection [Recovering/Resolving]
  - Pain management [Unknown]
  - Walking aid user [Unknown]
  - Abasia [Unknown]

NARRATIVE: CASE EVENT DATE: 201005
